FAERS Safety Report 25336917 (Version 1)
Quarter: 2025Q2

REPORT INFORMATION
  Report Type: Spontaneous
  Country: GB (occurrence: GB)
  Receive Date: 20250520
  Receipt Date: 20250520
  Transmission Date: 20250717
  Serious: Yes (Other)
  Sender: MYLAN
  Company Number: None

PATIENT
  Sex: Female

DRUGS (4)
  1. DIMETHYL FUMARATE [Suspect]
     Active Substance: DIMETHYL FUMARATE
     Indication: Product used for unknown indication
     Dosage: 2 DOSAGE FORM, AM (TWO CAPSULES OF DMF IN THE MORNING)
  2. DIMETHYL FUMARATE [Suspect]
     Active Substance: DIMETHYL FUMARATE
     Dosage: 2 DOSAGE FORM, AM (TWO CAPSULES OF DMF IN THE MORNING)
     Route: 065
  3. DIMETHYL FUMARATE [Suspect]
     Active Substance: DIMETHYL FUMARATE
     Dosage: 2 DOSAGE FORM, AM (TWO CAPSULES OF DMF IN THE MORNING)
     Route: 065
  4. DIMETHYL FUMARATE [Suspect]
     Active Substance: DIMETHYL FUMARATE
     Dosage: 2 DOSAGE FORM, AM (TWO CAPSULES OF DMF IN THE MORNING)

REACTIONS (2)
  - Abdominal pain upper [Recovered/Resolved]
  - Medication error [Unknown]

NARRATIVE: CASE EVENT DATE: 20250514
